FAERS Safety Report 25286930 (Version 1)
Quarter: 2025Q2

REPORT INFORMATION
  Report Type: Spontaneous
  Country: US (occurrence: US)
  Receive Date: 20250509
  Receipt Date: 20250509
  Transmission Date: 20250717
  Serious: No
  Sender: MISSION PHARMACAL COMPANY
  Company Number: US-Mission Pharmacal Company-2176435

PATIENT
  Age: 26 Year
  Sex: Male

DRUGS (2)
  1. POTASSIUM CITRATE [Suspect]
     Active Substance: POTASSIUM CITRATE
     Indication: Cystinuria
  2. THIOLA EC [Concomitant]
     Active Substance: TIOPRONIN
     Dates: start: 20250425

REACTIONS (11)
  - Myalgia [Unknown]
  - Drug ineffective [Unknown]
  - Flank pain [Unknown]
  - Eye irritation [Unknown]
  - Swelling [Unknown]
  - Gastrooesophageal reflux disease [Unknown]
  - Dyspepsia [Unknown]
  - Chest pain [Unknown]
  - Pyrexia [Unknown]
  - Headache [Unknown]
  - Malaise [Unknown]
